FAERS Safety Report 20959567 (Version 1)
Quarter: 2022Q2

REPORT INFORMATION
  Report Type: Spontaneous
  Country: JP (occurrence: JP)
  Receive Date: 20220614
  Receipt Date: 20220614
  Transmission Date: 20220720
  Serious: Yes (Hospitalization)
  Sender: FDA-Public Use
  Company Number: JP-DSJP-DSJ-2022-120451

PATIENT
  Age: 9 Decade
  Sex: Female

DRUGS (1)
  1. EDOXABAN TOSYLATE [Suspect]
     Active Substance: EDOXABAN TOSYLATE
     Indication: Atrial fibrillation
     Dosage: 30 MG, QD MORNING
     Route: 048

REACTIONS (2)
  - Cerebral infarction [Unknown]
  - International normalised ratio decreased [Unknown]

NARRATIVE: CASE EVENT DATE: 20220318
